FAERS Safety Report 21058928 (Version 1)
Quarter: 2022Q3

REPORT INFORMATION
  Report Type: Spontaneous
  Country: MY (occurrence: None)
  Receive Date: 20220708
  Receipt Date: 20220708
  Transmission Date: 20221026
  Serious: Yes (Other)
  Sender: FDA-Public Use
  Company Number: MY-ROCHE-3129952

PATIENT
  Age: 47 Year
  Sex: Male

DRUGS (1)
  1. PERJETA [Suspect]
     Active Substance: PERTUZUMAB
     Indication: Product used for unknown indication
     Route: 065

REACTIONS (2)
  - Diarrhoea [Unknown]
  - Colon cancer [Unknown]
